FAERS Safety Report 21206788 (Version 1)
Quarter: 2022Q3

REPORT INFORMATION
  Report Type: Spontaneous
  Country: US (occurrence: US)
  Receive Date: 20220812
  Receipt Date: 20220812
  Transmission Date: 20221026
  Serious: Yes (Hospitalization, Other)
  Sender: FDA-Public Use
  Company Number: US-ELI_LILLY_AND_COMPANY-US202208004535

PATIENT
  Age: 42 Year
  Sex: Female

DRUGS (4)
  1. DULOXETINE HYDROCHLORIDE [Interacting]
     Active Substance: DULOXETINE HYDROCHLORIDE
     Indication: Product used for unknown indication
     Dosage: 60 MG, BID
     Route: 065
  2. NORTRIPTYLINE [Interacting]
     Active Substance: NORTRIPTYLINE
     Indication: Product used for unknown indication
     Dosage: 150 MG, QHS
     Route: 065
  3. METOCLOPRAMIDE [Interacting]
     Active Substance: METOCLOPRAMIDE
     Indication: Product used for unknown indication
     Dosage: 10 MG, QID PRN
     Route: 065
  4. METOCLOPRAMIDE [Interacting]
     Active Substance: METOCLOPRAMIDE
     Dosage: 10 MG, QID
     Route: 042

REACTIONS (7)
  - Fall [Unknown]
  - Dystonia [Recovered/Resolved]
  - Acute kidney injury [Unknown]
  - Serotonin syndrome [Recovered/Resolved]
  - Nausea [Unknown]
  - Vomiting [Unknown]
  - Drug interaction [Unknown]
